FAERS Safety Report 4457472-6 (Version None)
Quarter: 2004Q3

REPORT INFORMATION
  Report Type: 
  Country: None (occurrence: None)
  Receive Date: 20040922
  Receipt Date: 20040909
  Transmission Date: 20050211
  Serious: Yes (Other)
  Sender: FDA-Public Use
  Company Number: 2004065152

PATIENT
  Age: 43 Year
  Sex: Male
  Weight: 97.5234 kg

DRUGS (4)
  1. DILANTIN KAPSEAL [Suspect]
     Indication: GRAND MAL CONVULSION
     Dosage: 300 MG (100 MG), ORAL
     Route: 048
     Dates: start: 20010101, end: 20020201
  2. DILANTIN KAPSEAL [Suspect]
     Indication: PARTIAL SEIZURES
     Dosage: 300 MG (100 MG), ORAL
     Route: 048
     Dates: start: 20010101, end: 20020201
  3. ZOLOFT [Suspect]
     Indication: DEPRESSION
     Dosage: 50 MG (50 MG, 1 IN 1 D), ORAL
     Route: 048
     Dates: start: 20030101
  4. TOPIRAMATE [Suspect]
     Indication: CONVULSION
     Dosage: ORAL
     Route: 048
     Dates: start: 20010101, end: 20020201

REACTIONS (13)
  - ATRIAL FIBRILLATION [None]
  - BACK PAIN [None]
  - CONDITION AGGRAVATED [None]
  - DEPRESSION [None]
  - DISEASE RECURRENCE [None]
  - DYSARTHRIA [None]
  - GRAND MAL CONVULSION [None]
  - HYPERSENSITIVITY [None]
  - MEMORY IMPAIRMENT [None]
  - MOVEMENT DISORDER [None]
  - PARTIAL SEIZURES [None]
  - RASH GENERALISED [None]
  - TREMOR [None]
